FAERS Safety Report 6100016-3 (Version None)
Quarter: 2009Q1

REPORT INFORMATION
  Report Type: 
  Country: None (occurrence: None)
  Receive Date: 20090303
  Receipt Date: 20090227
  Transmission Date: 20090719
  Serious: Yes (Death, Life-Threatening)
  Sender: FDA-Public Use
  Company Number: B0482698A

PATIENT
  Age: 40 Year
  Sex: Male

DRUGS (12)
  1. ABACAVIR SULFATE/LAMIVUDINE [Suspect]
     Indication: HIV INFECTION
     Dosage: 900MG PER DAY
     Route: 048
     Dates: start: 20070705, end: 20070730
  2. ANTI-VIRAL MEDICATION [Concomitant]
     Indication: HIV INFECTION
     Route: 065
  3. KLACID [Concomitant]
     Dosage: 1000MG PER DAY
     Route: 048
     Dates: start: 20070712
  4. COLCHICINE [Concomitant]
     Indication: DRUG USE FOR UNKNOWN INDICATION
     Dosage: 1MG PER DAY
     Route: 048
     Dates: start: 20070714, end: 20070730
  5. DIFLUCAN [Concomitant]
     Dosage: 200MG PER DAY
     Route: 048
     Dates: start: 20070628, end: 20070711
  6. LASIX [Concomitant]
     Indication: DRUG USE FOR UNKNOWN INDICATION
     Dosage: 25MG PER DAY
     Route: 048
  7. TIENAM [Concomitant]
     Dosage: 2000MG PER DAY
     Route: 042
     Dates: start: 20070712, end: 20070721
  8. IMMUNE GLOBULIN NOS [Concomitant]
     Indication: DRUG USE FOR UNKNOWN INDICATION
     Dosage: 25G PER DAY
     Route: 042
     Dates: start: 20070714, end: 20070718
  9. KALETRA [Concomitant]
     Indication: HIV INFECTION
     Route: 048
     Dates: start: 20070705, end: 20070730
  10. KONAKION [Concomitant]
     Indication: DRUG USE FOR UNKNOWN INDICATION
     Dosage: 40DROP PER DAY
     Route: 048
  11. ALDACTONE [Concomitant]
     Indication: DRUG USE FOR UNKNOWN INDICATION
     Dosage: 100MG PER DAY
     Route: 048
  12. FLUCONAZOLE [Concomitant]
     Dosage: 200MG PER DAY
     Route: 048
     Dates: start: 20070628, end: 20070711

REACTIONS (14)
  - ANURIA [None]
  - ASCITES [None]
  - CONDITION AGGRAVATED [None]
  - DYSPNOEA [None]
  - HEPATIC FAILURE [None]
  - INTERSTITIAL LUNG DISEASE [None]
  - LACTIC ACIDOSIS [None]
  - LIVER DISORDER [None]
  - MULTI-ORGAN FAILURE [None]
  - OLIGURIA [None]
  - RENAL FAILURE [None]
  - RESPIRATORY FAILURE [None]
  - SHOCK [None]
  - VASCULITIS [None]
